FAERS Safety Report 12147387 (Version 2)
Quarter: 2016Q1

REPORT INFORMATION
  Report Type: Report from Study
  Country: BR (occurrence: BR)
  Receive Date: 20160304
  Receipt Date: 20160328
  Transmission Date: 20160526
  Serious: No
  Sender: FDA-Public Use
  Company Number: PHHY2016BR027463

PATIENT
  Sex: Female
  Weight: 45 kg

DRUGS (1)
  1. SANDOSTATIN LAR DEPOT [Suspect]
     Active Substance: OCTREOTIDE ACETATE
     Indication: NEUROENDOCRINE CARCINOMA METASTATIC
     Dosage: 40 MG (2 AMPOULES OF 20 MG), QMO
     Route: 030
     Dates: start: 2004

REACTIONS (4)
  - Product quality issue [Unknown]
  - Pain [Unknown]
  - Syringe issue [Unknown]
  - Viral infection [Unknown]
